FAERS Safety Report 5859344-9 (Version None)
Quarter: 2008Q3

REPORT INFORMATION
  Report Type: 
  Country: None (occurrence: None)
  Receive Date: 20080826
  Receipt Date: 20080826
  Transmission Date: 20090109
  Serious: Yes (Hospitalization)
  Sender: FDA-Public Use
  Company Number: None

PATIENT
  Sex: Male
  Weight: 112 kg

DRUGS (1)
  1. TEMOZOLOMIDE [Suspect]
     Dosage: 5460 MG

REACTIONS (8)
  - DEHYDRATION [None]
  - DYSPNOEA [None]
  - HYDROCEPHALUS [None]
  - LEUKOPENIA [None]
  - MENINGEAL DISORDER [None]
  - NEUTROPENIA [None]
  - SPINAL CORD DISORDER [None]
  - THROMBOCYTOPENIA [None]
